FAERS Safety Report 23215822 (Version 1)
Quarter: 2023Q4

REPORT INFORMATION
  Report Type: Spontaneous
  Country: US (occurrence: US)
  Receive Date: 20231122
  Receipt Date: 20231122
  Transmission Date: 20240110
  Serious: Yes (Other)
  Sender: FDA-Public Use
  Company Number: ENDG23-05209

PATIENT

DRUGS (4)
  1. VARENICLINE [Suspect]
     Active Substance: VARENICLINE
     Indication: Smoking cessation therapy
     Dosage: UNK UNKNOWN, UNKNOWN
     Route: 065
     Dates: start: 202301, end: 202303
  2. VARENICLINE [Suspect]
     Active Substance: VARENICLINE
     Dosage: UNK UNKNOWN, UNKNOWN
     Route: 065
     Dates: start: 202304, end: 202306
  3. VARENICLINE [Suspect]
     Active Substance: VARENICLINE
     Dosage: UNK UNKNOWN, UNKNOWN
     Route: 065
     Dates: start: 202307, end: 2023
  4. VARENICLINE [Suspect]
     Active Substance: VARENICLINE
     Dosage: UNK UNKNOWN, UNKNOWN
     Route: 065
     Dates: start: 2022

REACTIONS (2)
  - Diabetes mellitus [Unknown]
  - Influenza [Unknown]

NARRATIVE: CASE EVENT DATE: 20230101
